FAERS Safety Report 8244373-0 (Version None)
Quarter: 2012Q1

REPORT INFORMATION
  Report Type: 
  Country: None (occurrence: None)
  Receive Date: 20120329
  Receipt Date: 20120315
  Transmission Date: 20120608
  Serious: Yes (Other)
  Sender: FDA-Public Use
  Company Number: GB-BAUSCH-2012BL001966

PATIENT
  Age: 55 Year
  Sex: Male

DRUGS (14)
  1. DOXORUBICIN HCL [Suspect]
     Indication: MULTIPLE MYELOMA
     Route: 042
     Dates: start: 20101018, end: 20101109
  2. AMOXICILLIN [Concomitant]
     Route: 048
     Dates: start: 20101025
  3. ACETAMINOPHEN [Concomitant]
     Indication: ANALGESIC THERAPY
     Route: 048
     Dates: start: 20101025
  4. THALIDOMIDE [Concomitant]
     Indication: MULTIPLE MYELOMA
     Dates: start: 20091101, end: 20100101
  5. CYCLOPHOSPHAMIDE [Concomitant]
     Indication: MULTIPLE MYELOMA
     Dates: start: 20091101, end: 20100101
  6. MELPHALAN HYDROCHLORIDE [Concomitant]
     Dates: start: 20100301, end: 20100301
  7. DEXAMETHASONE [Suspect]
     Indication: MULTIPLE MYELOMA
     Route: 048
     Dates: start: 20101018, end: 20101109
  8. DEXAMETHASONE [Suspect]
     Route: 048
     Dates: start: 20100927, end: 20101017
  9. VELCADE [Suspect]
     Dosage: DOSE UNIT:UNKNOWN
     Route: 042
     Dates: start: 20100927
  10. DOXORUBICIN HCL [Suspect]
     Route: 042
     Dates: start: 20100927, end: 20101017
  11. ENOXAPARIN SODIUM [Concomitant]
     Route: 058
     Dates: start: 20111109
  12. VELCADE [Suspect]
     Indication: MULTIPLE MYELOMA
     Dosage: DOSE UNIT:UNKNOWN
     Route: 042
     Dates: start: 20101018, end: 20101110
  13. DEXAMETHASONE [Concomitant]
     Dates: start: 20091101, end: 20100101
  14. GABAPENTIN [Concomitant]
     Indication: ANALGESIC THERAPY
     Route: 048
     Dates: start: 20101024

REACTIONS (3)
  - MULTIPLE MYELOMA [None]
  - DIARRHOEA [None]
  - DRUG INEFFECTIVE [None]
